FAERS Safety Report 8141026-4 (Version None)
Quarter: 2012Q1

REPORT INFORMATION
  Report Type: 
  Country: None (occurrence: None)
  Receive Date: 20120216
  Receipt Date: 20120207
  Transmission Date: 20120608
  Serious: No
  Sender: FDA-Public Use
  Company Number: FR-ASTELLAS-2012EU000801

PATIENT
  Sex: Female
  Weight: 54 kg

DRUGS (4)
  1. PROGRAF [Suspect]
     Indication: LIVER TRANSPLANT
     Dosage: UNK MG, UNKNOWN/D
     Route: 048
     Dates: end: 20111001
  2. PANTOPRAZOLE SODIUM [Concomitant]
     Dosage: 40 MG, UNKNOWN/D
     Route: 048
     Dates: start: 20070801
  3. PREDNISONE TAB [Concomitant]
     Dosage: 5 MG, UNKNOWN/D
     Route: 048
     Dates: start: 20070801
  4. ASPEGIC 325 [Concomitant]
     Dosage: 250 MG, UNKNOWN/D
     Route: 048
     Dates: start: 20070801

REACTIONS (2)
  - MUSCLE SPASMS [None]
  - MIGRAINE [None]
